FAERS Safety Report 11843469 (Version 1)
Quarter: 2015Q4

REPORT INFORMATION
  Report Type: Report from Study
  Country: BR (occurrence: BR)
  Receive Date: 20151217
  Receipt Date: 20151217
  Transmission Date: 20160305
  Serious: Yes (Other)
  Sender: FDA-Public Use
  Company Number: BR-ROCHE-1347928

PATIENT
  Age: 45 Year
  Sex: Female
  Weight: 75 kg

DRUGS (5)
  1. MABTHERA [Suspect]
     Active Substance: RITUXIMAB
     Dosage: MOST RECENT ONE ON 20/APR/2015
     Route: 042
     Dates: start: 20150406
  2. TANDRILAX [Suspect]
     Active Substance: ACETAMINOPHEN\CAFFEINE\CARISOPRODOL\DICLOFENAC SODIUM
     Indication: PRODUCT USED FOR UNKNOWN INDICATION
     Route: 065
  3. BENZETACIL [Concomitant]
     Active Substance: PENICILLIN G BENZATHINE
     Indication: RHEUMATIC DISORDER
  4. SEDALEX [Concomitant]
     Indication: MYALGIA
     Dosage: DISCONTINUED
     Route: 065
  5. MABTHERA [Suspect]
     Active Substance: RITUXIMAB
     Indication: RHEUMATOID ARTHRITIS
     Route: 042
     Dates: start: 20140204

REACTIONS (17)
  - Hepatic infection [Unknown]
  - Hepatitis [Unknown]
  - Pyrexia [Unknown]
  - Oropharyngeal pain [Unknown]
  - Pain [Not Recovered/Not Resolved]
  - Drug ineffective [Unknown]
  - Nephrolithiasis [Not Recovered/Not Resolved]
  - Hepatomegaly [Unknown]
  - Oedema [Unknown]
  - Back pain [Not Recovered/Not Resolved]
  - Hepatic infection [Unknown]
  - Urinary tract infection [Not Recovered/Not Resolved]
  - Weight increased [Unknown]
  - Aspartate aminotransferase abnormal [Unknown]
  - Alanine aminotransferase abnormal [Unknown]
  - Headache [Unknown]
  - Swelling [Unknown]

NARRATIVE: CASE EVENT DATE: 201510
